FAERS Safety Report 10100150 (Version 3)
Quarter: 2015Q3

REPORT INFORMATION
  Report Type: Spontaneous
  Country: US (occurrence: US)
  Receive Date: 20140423
  Receipt Date: 20150814
  Transmission Date: 20151125
  Serious: No
  Sender: FDA-Public Use
  Company Number: US-GILEAD-2013-0075203

PATIENT
  Age: 48 Year
  Sex: Male

DRUGS (4)
  1. LETAIRIS [Suspect]
     Active Substance: AMBRISENTAN
     Indication: CONNECTIVE TISSUE DISORDER
  2. REVATIO [Concomitant]
     Active Substance: SILDENAFIL CITRATE
  3. EPOPROSTENOL. [Concomitant]
     Active Substance: EPOPROSTENOL
  4. LETAIRIS [Suspect]
     Active Substance: AMBRISENTAN
     Indication: PULMONARY HYPERTENSION
     Dosage: 5 MG, QD
     Dates: start: 20110420

REACTIONS (1)
  - Dermatitis [Unknown]
